FAERS Safety Report 17052729 (Version 1)
Quarter: 2019Q4

REPORT INFORMATION
  Report Type: Spontaneous
  Country: SE (occurrence: SE)
  Receive Date: 20191120
  Receipt Date: 20191120
  Transmission Date: 20200122
  Serious: Yes (Death)
  Sender: FDA-Public Use
  Company Number: SE-ROCHE-2476508

PATIENT
  Age: 52 Year
  Sex: Female

DRUGS (1)
  1. MABTHERA [Suspect]
     Active Substance: RITUXIMAB
     Indication: TUMEFACTIVE MULTIPLE SCLEROSIS
     Route: 041
     Dates: start: 20121220, end: 20160406

REACTIONS (1)
  - Uterine cancer [Fatal]

NARRATIVE: CASE EVENT DATE: 20161214
